FAERS Safety Report 7487827-7 (Version None)
Quarter: 2011Q2

REPORT INFORMATION
  Report Type: 
  Country: None (occurrence: None)
  Receive Date: 20110518
  Receipt Date: 20110504
  Transmission Date: 20111010
  Serious: Yes (Hospitalization)
  Sender: FDA-Public Use
  Company Number: US-JNJFOC-20110503784

PATIENT
  Sex: Female
  Weight: 77.11 kg

DRUGS (8)
  1. RISPERDAL [Suspect]
     Indication: PARANOIA
     Route: 048
     Dates: start: 20100901
  2. INVEGA SUSTENNA [Suspect]
     Route: 030
     Dates: start: 20110315, end: 20110315
  3. RISPERDAL [Suspect]
     Indication: BIPOLAR DISORDER
     Route: 048
     Dates: start: 20100901
  4. INVEGA [Suspect]
     Indication: BIPOLAR DISORDER
     Route: 048
     Dates: start: 20110328
  5. INVEGA SUSTENNA [Suspect]
     Route: 030
     Dates: start: 20110315, end: 20110315
  6. INVEGA SUSTENNA [Suspect]
     Indication: PARANOIA
     Route: 030
     Dates: start: 20110312, end: 20110312
  7. INVEGA SUSTENNA [Suspect]
     Indication: BIPOLAR DISORDER
     Route: 030
     Dates: start: 20110312, end: 20110312
  8. INVEGA [Suspect]
     Indication: PARANOIA
     Route: 048
     Dates: start: 20110328

REACTIONS (10)
  - MENTAL STATUS CHANGES [None]
  - DROOLING [None]
  - OVERDOSE [None]
  - INAPPROPRIATE SCHEDULE OF DRUG ADMINISTRATION [None]
  - RESTLESSNESS [None]
  - DYSPNOEA [None]
  - PALPITATIONS [None]
  - CONVERSION DISORDER [None]
  - SCREAMING [None]
  - SEDATION [None]
